FAERS Safety Report 17562366 (Version 1)
Quarter: 2020Q1

REPORT INFORMATION
  Report Type: Spontaneous
  Country: US (occurrence: US)
  Receive Date: 20200319
  Receipt Date: 20200319
  Transmission Date: 20200409
  Serious: Yes (Other)
  Sender: FDA-Public Use
  Company Number: US-KALA PHARAMACEUTICALS-2020KLA00013

PATIENT
  Age: 50 Year
  Sex: Female

DRUGS (3)
  1. TOBRADEX [Suspect]
     Active Substance: DEXAMETHASONE\TOBRAMYCIN
     Indication: INTRAOCULAR PRESSURE INCREASED
     Dosage: 2 TO 3 DAYS
     Dates: start: 2020, end: 2020
  2. ^EPITRIN^ (EPIDRIN) [Concomitant]
     Indication: MIGRAINE
  3. INVELTYS [Suspect]
     Active Substance: LOTEPREDNOL ETABONATE
     Indication: ADENOVIRAL CONJUNCTIVITIS
     Dosage: UNK UNK, 3X/DAY OU
     Route: 047
     Dates: start: 20200205, end: 20200211

REACTIONS (2)
  - Off label use [Recovered/Resolved]
  - Intraocular pressure increased [Recovered/Resolved]

NARRATIVE: CASE EVENT DATE: 2020
